FAERS Safety Report 4294436-X (Version None)
Quarter: 2004Q1

REPORT INFORMATION
  Report Type: 
  Country: None (occurrence: None)
  Receive Date: 20040211
  Receipt Date: 20040122
  Transmission Date: 20041129
  Serious: Yes (Death)
  Sender: FDA-Public Use
  Company Number: USA031050193

PATIENT

DRUGS (2)
  1. ZYPREXA [Suspect]
  2. BENADRYL [Concomitant]

REACTIONS (1)
  - OVERDOSE [None]
